FAERS Safety Report 10340740 (Version 1)
Quarter: 2014Q3

REPORT INFORMATION
  Report Type: Spontaneous
  Country: DE (occurrence: None)
  Receive Date: 20140722
  Receipt Date: 20140722
  Transmission Date: 20150326
  Serious: Yes (Other)
  Sender: FDA-Public Use
  Company Number: 2014DE004314

PATIENT
  Age: 49 Year
  Sex: Male
  Weight: 48 kg

DRUGS (2)
  1. ELIGARD [Suspect]
     Active Substance: LEUPROLIDE ACETATE
     Indication: PROPHYLAXIS
     Route: 058
     Dates: start: 20060405, end: 20140509
  2. ALENDRONIC ACID (ALENDRONIC ACID) UNKNOWN, UNKNOWN [Concomitant]
     Active Substance: ALENDRONIC ACID

REACTIONS (2)
  - Off label use [None]
  - Blood testosterone increased [None]

NARRATIVE: CASE EVENT DATE: 20140411
